FAERS Safety Report 9920776 (Version 2)
Quarter: 2014Q1

REPORT INFORMATION
  Report Type: Spontaneous
  Country: US (occurrence: US)
  Receive Date: 20140224
  Receipt Date: 20140224
  Transmission Date: 20141002
  Serious: Yes (Other)
  Sender: FDA-Public Use
  Company Number: US-GE HEALTHCARE MEDICAL DIAGNOSTICS-OSCN-PR-0806S-0400

PATIENT
  Age: 64 Year
  Sex: Male

DRUGS (5)
  1. OMNISCAN [Suspect]
     Indication: LIVER DISORDER
     Route: 042
     Dates: start: 20050922, end: 20050922
  2. OMNISCAN [Suspect]
     Indication: ENCEPHALOPATHY
     Route: 042
     Dates: start: 20051106, end: 20051106
  3. OMNISCAN [Suspect]
     Indication: ABNORMAL BEHAVIOUR
  4. EPOGEN [Concomitant]
     Indication: PRODUCT USED FOR UNKNOWN INDICATION
  5. PREDNISONE [Concomitant]
     Indication: PRODUCT USED FOR UNKNOWN INDICATION

REACTIONS (1)
  - Nephrogenic systemic fibrosis [Not Recovered/Not Resolved]
